FAERS Safety Report 7796489-0 (Version None)
Quarter: 2011Q4

REPORT INFORMATION
  Report Type: 
  Country: None (occurrence: None)
  Receive Date: 20111005
  Receipt Date: 20110922
  Transmission Date: 20120403
  Serious: Yes (Other)
  Sender: FDA-Public Use
  Company Number: US-RANBAXY-2011RR-48564

PATIENT
  Sex: Male
  Weight: 147 kg

DRUGS (13)
  1. LEVAQUIN [Suspect]
     Dosage: UNK
     Route: 065
     Dates: start: 20070322
  2. DECONAMINE SR [Concomitant]
     Indication: PRODUCT USED FOR UNKNOWN INDICATION
     Dosage: 1 DF, BID
     Route: 048
  3. LEVAQUIN [Suspect]
     Dosage: UNK
     Route: 065
     Dates: start: 20080919
  4. FLONASE [Suspect]
     Indication: PRODUCT USED FOR UNKNOWN INDICATION
     Dosage: 2 DF, PRN
     Route: 045
  5. ALBUTEROL [Concomitant]
     Indication: PRODUCT USED FOR UNKNOWN INDICATION
     Dosage: 2 DF, PRN
     Route: 065
  6. LEVAQUIN [Suspect]
     Dosage: UNK
     Route: 065
     Dates: start: 20100720
  7. VERAMYST NOS [Suspect]
     Indication: PRODUCT USED FOR UNKNOWN INDICATION
     Dosage: 2 DF, QD
     Route: 045
  8. FLUOCINONIDE [Concomitant]
     Indication: PRODUCT USED FOR UNKNOWN INDICATION
     Dosage: 0.05% CREAM, APPLY AS DIRECTED
     Route: 061
  9. VIAGRA [Concomitant]
     Indication: PRODUCT USED FOR UNKNOWN INDICATION
     Dosage: 100 MG, PRN
     Route: 065
  10. HYDROCORTISONE [Suspect]
     Indication: PRODUCT USED FOR UNKNOWN INDICATION
     Dosage: 2.5% CREAM, APPLY AS DIRECTED
     Route: 061
  11. LEVAQUIN [Suspect]
     Indication: SINUSITIS
     Dosage: UNK
     Route: 065
     Dates: start: 20070308
  12. LEVAQUIN [Suspect]
     Dosage: UNK
     Route: 065
     Dates: start: 20070315
  13. DYAZIDE [Concomitant]
     Indication: PRODUCT USED FOR UNKNOWN INDICATION
     Dosage: 1 DF, QD
     Route: 048

REACTIONS (14)
  - TENDONITIS [None]
  - JOINT SWELLING [None]
  - BACK PAIN [None]
  - PERIPHERAL COLDNESS [None]
  - PLANTAR FASCIITIS [None]
  - PALMAR FASCIITIS [None]
  - SENSORY LOSS [None]
  - LIGAMENT SPRAIN [None]
  - FALL [None]
  - HYPOAESTHESIA [None]
  - PARAESTHESIA [None]
  - TENDON CALCIFICATION [None]
  - ARTHRALGIA [None]
  - MYALGIA [None]
